FAERS Safety Report 5584596-2 (Version None)
Quarter: 2008Q1

REPORT INFORMATION
  Report Type: 
  Country: None (occurrence: None)
  Receive Date: 20080108
  Receipt Date: 20071207
  Transmission Date: 20080703
  Serious: No
  Sender: FDA-Public Use
  Company Number: US-BAYER-200712470BCC

PATIENT
  Sex: Female
  Weight: 77 kg

DRUGS (8)
  1. ALEVE [Suspect]
     Indication: DRUG USE FOR UNKNOWN INDICATION
     Dosage: TOTAL DAILY DOSE: 220 MG  UNIT DOSE: 220 MG
     Route: 048
     Dates: start: 20060101
  2. TYLENOL [Concomitant]
  3. GLIPIZIDE [Concomitant]
  4. SPIRONOLACTONE [Concomitant]
  5. ATENOLOL [Concomitant]
  6. AZITHROMYCIN [Concomitant]
  7. TRAMADOL HCL [Concomitant]
  8. NASACORT SPRAY [Concomitant]

REACTIONS (1)
  - THROAT IRRITATION [None]
